FAERS Safety Report 14995560 (Version 3)
Quarter: 2018Q4

REPORT INFORMATION
  Report Type: Report from Study
  Country: None (occurrence: AR)
  Receive Date: 20180611
  Receipt Date: 20181028
  Transmission Date: 20190204
  Serious: Yes (Other)
  Sender: FDA-Public Use
  Company Number: AR-ABBVIE-17K-007-2144821-00

PATIENT
  Age: 43 Year
  Sex: Female

DRUGS (1)
  1. HUMIRA [Suspect]
     Active Substance: ADALIMUMAB
     Indication: RHEUMATOID ARTHRITIS
     Route: 058
     Dates: start: 20150424, end: 201703

REACTIONS (7)
  - Arthralgia [Unknown]
  - Exposure during pregnancy [Unknown]
  - Premature baby [Unknown]
  - Amniotic fluid volume decreased [Unknown]
  - Systemic lupus erythematosus [Not Recovered/Not Resolved]
  - Anaemia of pregnancy [Unknown]
  - Live birth [Unknown]

NARRATIVE: CASE EVENT DATE: 2018
